FAERS Safety Report 4415692-0 (Version None)
Quarter: 2004Q2

REPORT INFORMATION
  Report Type: 
  Country: None (occurrence: None)
  Receive Date: 20040628
  Receipt Date: 20040217
  Transmission Date: 20050107
  Serious: Yes (Other)
  Sender: FDA-Public Use
  Company Number: 359291

PATIENT
  Age: 72 Year
  Sex: Female

DRUGS (7)
  1. CELLCEPT [Suspect]
     Indication: SYSTEMIC LUPUS ERYTHEMATOSUS
     Dosage: 500 MG 2 PER DAY ORAL
     Route: 048
     Dates: start: 20030915
  2. ZETIA [Concomitant]
  3. NEURONTIN [Concomitant]
  4. MAXZIDE [Concomitant]
  5. NIZATIDINE [Concomitant]
  6. AMITRIPTYLINE HCL [Concomitant]
  7. PREDNISONE [Concomitant]

REACTIONS (2)
  - BLOOD GLUCOSE INCREASED [None]
  - DIABETES MELLITUS [None]
